FAERS Safety Report 5118889-X (Version None)
Quarter: 2006Q4

REPORT INFORMATION
  Report Type: 
  Country: None (occurrence: None)
  Receive Date: 20061002
  Receipt Date: 20010514
  Transmission Date: 20070319
  Serious: Yes (Death, Hospitalization)
  Sender: FDA-Public Use
  Company Number: US-BOEHRINGER INGELHEIM PHARMACEUTICALS, INC.-2001-BP-01639

PATIENT
  Sex: Male
  Weight: 100.7 kg

DRUGS (4)
  1. TIPRANAVIR / RITONAVIR CAPSULES [Suspect]
     Indication: ACQUIRED IMMUNODEFICIENCY SYNDROME
     Dosage: TPV/RTV 1250/100MG
     Route: 048
     Dates: start: 20010404, end: 20010424
  2. VIRAMUNE [Suspect]
     Indication: HIV INFECTION
     Route: 048
     Dates: end: 20010503
  3. ZERIT [Suspect]
     Indication: HIV INFECTION
     Route: 048
     Dates: end: 20010503
  4. VIDEX [Suspect]
     Indication: HIV INFECTION
     Route: 048
     Dates: end: 20010503

REACTIONS (10)
  - ALANINE AMINOTRANSFERASE INCREASED [None]
  - ASPARTATE AMINOTRANSFERASE INCREASED [None]
  - BRAIN STEM INFARCTION [None]
  - CARDIAC ARREST [None]
  - DEHYDRATION [None]
  - DYSPNOEA [None]
  - LACTIC ACIDOSIS [None]
  - LIVER FUNCTION TEST ABNORMAL [None]
  - RENAL FAILURE ACUTE [None]
  - RESPIRATORY DISTRESS [None]
